FAERS Safety Report 4508006-9 (Version None)
Quarter: 2004Q4

REPORT INFORMATION
  Report Type: 
  Country: None (occurrence: None)
  Receive Date: 20041122
  Receipt Date: 20041122
  Transmission Date: 20050328
  Serious: No
  Sender: FDA-Public Use
  Company Number: None

PATIENT
  Age: 56 Year
  Sex: Male
  Weight: 118 kg

DRUGS (1)
  1. CITALOPRAM 40 MG (FOREST) [Suspect]
     Indication: DEPRESSION
     Dosage: 40 MG PO QD
     Route: 048
     Dates: start: 20040610, end: 20041007

REACTIONS (1)
  - NIGHTMARE [None]
